FAERS Safety Report 24170753 (Version 1)
Quarter: 2024Q3

REPORT INFORMATION
  Report Type: Spontaneous
  Country: US (occurrence: None)
  Receive Date: 20240802
  Receipt Date: 20240802
  Transmission Date: 20241017
  Serious: Yes (Disabling)
  Sender: Public
  Company Number: None

PATIENT
  Age: 62 Year
  Sex: Female
  Weight: 67.5 kg

DRUGS (5)
  1. ENTYVIO [Suspect]
     Active Substance: VEDOLIZUMAB
     Indication: Colitis ulcerative
     Dosage: OTHER QUANTITY : 1 PREFILLED SQ PEN?OTHER FREQUENCY : Q 2 WEEKS?
     Route: 058
     Dates: start: 20240311, end: 20240520
  2. LORATADINE [Concomitant]
  3. PANTOPRAZOLE [Concomitant]
  4. FIBER [Concomitant]
  5. D-MANNOSE [Concomitant]

REACTIONS (3)
  - Injection site erythema [None]
  - Injection site swelling [None]
  - Injection site rash [None]

NARRATIVE: CASE EVENT DATE: 20240520
